FAERS Safety Report 16273124 (Version 1)
Quarter: 2019Q2

REPORT INFORMATION
  Report Type: Spontaneous
  Country: US (occurrence: US)
  Receive Date: 20190329
  Receipt Date: 20190329
  Transmission Date: 20190711
  Serious: No
  Sender: FDA-Public Use
  Company Number: None

PATIENT
  Age: 30 Year
  Sex: Female
  Weight: 108.86 kg

DRUGS (7)
  1. ENBREL [Suspect]
     Active Substance: ETANERCEPT
     Indication: SENILE OSTEOPOROSIS
     Route: 011
     Dates: start: 201701
  2. ENBREL [Suspect]
     Active Substance: ETANERCEPT
     Indication: PSORIATIC ARTHROPATHY
     Route: 011
     Dates: start: 201701
  3. ENBREL [Suspect]
     Active Substance: ETANERCEPT
     Indication: POLYNEUROPATHY IDIOPATHIC PROGRESSIVE
  4. ENBREL [Suspect]
     Active Substance: ETANERCEPT
     Indication: PSORIATIC ARTHROPATHY
  5. ENBREL [Suspect]
     Active Substance: ETANERCEPT
     Indication: POLYNEUROPATHY IDIOPATHIC PROGRESSIVE
     Route: 011
     Dates: start: 201701
  6. ENBREL [Suspect]
     Active Substance: ETANERCEPT
     Indication: RASH PAPULOSQUAMOUS
     Route: 011
     Dates: start: 201701
  7. ENBREL [Suspect]
     Active Substance: ETANERCEPT
     Indication: RASH PAPULOSQUAMOUS

REACTIONS (5)
  - Musculoskeletal disorder [None]
  - Bone disorder [None]
  - Therapy cessation [None]
  - Mobility decreased [None]
  - Influenza [None]
